FAERS Safety Report 4817928-0 (Version None)
Quarter: 2005Q3

REPORT INFORMATION
  Report Type: 
  Country: None (occurrence: None)
  Receive Date: 20050929
  Receipt Date: 20050617
  Transmission Date: 20060218
  Serious: No
  Sender: FDA-Public Use
  Company Number: 05P-163-0303451-00

PATIENT
  Age: 66 Year
  Sex: Female
  Weight: 72.5755 kg

DRUGS (11)
  1. HUMIRA [Suspect]
     Indication: RHEUMATOID ARTHRITIS
     Dosage: 40 MG, 1 IN 2 WK, SUBCUTANEOUS
     Route: 058
     Dates: start: 20041001
  2. SULFASALAZINE [Concomitant]
  3. PREDNISONE [Concomitant]
  4. GLIPIZIDE [Concomitant]
  5. METOPROLOL SUCCINATE [Concomitant]
  6. CALCIUM WITH VITAMIN D [Concomitant]
  7. AMLODIPINE BESYLATE [Concomitant]
  8. CYPROHEPTADINE HYDROCHLORIDE [Concomitant]
  9. ALPRAZOLAM [Concomitant]
  10. HYDROCHLOROTHIAZIDE [Concomitant]
  11. HYDROCODONE [Concomitant]

REACTIONS (1)
  - RASH MACULAR [None]
